FAERS Safety Report 11464195 (Version 1)
Quarter: 2015Q3

REPORT INFORMATION
  Report Type: Spontaneous
  Country: US (occurrence: US)
  Receive Date: 20150831
  Receipt Date: 20150831
  Transmission Date: 20151125
  Serious: No
  Sender: FDA-Public Use
  Company Number: US-ELI_LILLY_AND_COMPANY-US201107004072

PATIENT
  Sex: Female

DRUGS (3)
  1. RISPERDAL [Concomitant]
     Active Substance: RISPERIDONE
     Dosage: UNK
  2. CYMBALTA [Suspect]
     Active Substance: DULOXETINE HYDROCHLORIDE
     Indication: BIPOLAR DISORDER
     Dosage: 60 MG, BID
     Dates: start: 2005, end: 201104
  3. LITHIUM. [Concomitant]
     Active Substance: LITHIUM

REACTIONS (5)
  - Acne [Recovering/Resolving]
  - Weight decreased [Unknown]
  - Intentional product misuse [Unknown]
  - Scar [Not Recovered/Not Resolved]
  - Off label use [Recovered/Resolved]
